FAERS Safety Report 8136448-1 (Version None)
Quarter: 2012Q1

REPORT INFORMATION
  Report Type: 
  Country: None (occurrence: None)
  Receive Date: 20120214
  Receipt Date: 20120210
  Transmission Date: 20120608
  Serious: Yes (Other)
  Sender: FDA-Public Use
  Company Number: US-AMGEN-USASP2012009308

PATIENT
  Age: 63 Year
  Sex: Female

DRUGS (1)
  1. NEUPOGEN [Suspect]
     Indication: NEUTROPENIA
     Dosage: 300 MUG, 3 TIMES/WK
     Dates: start: 20110601

REACTIONS (4)
  - HYPOTENSION [None]
  - ABDOMINAL DISCOMFORT [None]
  - PAPILLOEDEMA [None]
  - DYSPNOEA [None]
